FAERS Safety Report 6535337-3 (Version None)
Quarter: 2010Q1

REPORT INFORMATION
  Report Type: 
  Country: None (occurrence: None)
  Receive Date: 20100111
  Receipt Date: 20100111
  Transmission Date: 20100710
  Serious: Yes (Other)
  Sender: FDA-Public Use
  Company Number: None

PATIENT
  Sex: Female
  Weight: 63.5036 kg

DRUGS (1)
  1. ZICAM COLD REMEDY ZICAM [Suspect]
     Indication: NASOPHARYNGITIS
     Dosage: SPRAY IN MOUTH EVERY THREE HOURS
     Dates: start: 20090401, end: 20090403

REACTIONS (4)
  - AGEUSIA [None]
  - ANOSMIA [None]
  - DYSGEUSIA [None]
  - HYPOSMIA [None]
